FAERS Safety Report 7112203-6 (Version None)
Quarter: 2010Q4

REPORT INFORMATION
  Report Type: 
  Country: None (occurrence: None)
  Receive Date: 20101119
  Receipt Date: 20100312
  Transmission Date: 20110411
  Serious: No
  Sender: FDA-Public Use
  Company Number: A0848044A

PATIENT
  Age: 69 Year
  Sex: Male

DRUGS (2)
  1. AVODART [Suspect]
     Indication: BENIGN PROSTATIC HYPERPLASIA
     Dosage: .5MQ24 PER DAY
     Route: 048
     Dates: start: 20100216
  2. FLOMAX [Concomitant]

REACTIONS (1)
  - URINE FLOW DECREASED [None]
